FAERS Safety Report 4393525-9 (Version None)
Quarter: 2004Q3

REPORT INFORMATION
  Report Type: 
  Country: None (occurrence: None)
  Receive Date: 20040707
  Receipt Date: 20040707
  Transmission Date: 20050211
  Serious: Yes (Other)
  Sender: FDA-Public Use
  Company Number: None

PATIENT
  Sex: Male
  Weight: 82.7 kg

DRUGS (1)
  1. DEFEROXAMINE-ABBOTT 2 GM/VIALS [Suspect]
     Indication: IRON METABOLISM DISORDER
     Dosage: 2000 MG SQ DAILY
     Route: 058
     Dates: start: 20040313, end: 20040604

REACTIONS (1)
  - MUSCLE SPASMS [None]
